FAERS Safety Report 18889603 (Version 1)
Quarter: 2021Q1

REPORT INFORMATION
  Report Type: Spontaneous
  Country: US (occurrence: US)
  Receive Date: 20210213
  Receipt Date: 20210213
  Transmission Date: 20210420
  Serious: No
  Sender: FDA-Public Use
  Company Number: US-TEVA-2021-US-1877175

PATIENT
  Age: 8 Year
  Sex: Male

DRUGS (1)
  1. LEUCOVORIN CALCIUM. [Suspect]
     Active Substance: LEUCOVORIN CALCIUM
     Route: 065

REACTIONS (5)
  - Psychomotor hyperactivity [Not Recovered/Not Resolved]
  - Insomnia [Not Recovered/Not Resolved]
  - Mental disorder [Not Recovered/Not Resolved]
  - Rash [Unknown]
  - Drug ineffective [Not Recovered/Not Resolved]
